FAERS Safety Report 6455738-1 (Version None)
Quarter: 2009Q4

REPORT INFORMATION
  Report Type: 
  Country: None (occurrence: None)
  Receive Date: 20091125
  Receipt Date: 20091103
  Transmission Date: 20100525
  Serious: No
  Sender: FDA-Public Use
  Company Number: US-ABBOTT-09P-163-0606573-00

PATIENT
  Sex: Female
  Weight: 71.732 kg

DRUGS (1)
  1. SIMCOR [Suspect]
     Indication: DRUG USE FOR UNKNOWN INDICATION
     Dosage: 500/20MG AT BEDTIME

REACTIONS (2)
  - FLUSHING [None]
  - MIDDLE INSOMNIA [None]
